FAERS Safety Report 5655888-3 (Version None)
Quarter: 2008Q1

REPORT INFORMATION
  Report Type: 
  Country: None (occurrence: None)
  Receive Date: 20080307
  Receipt Date: 20080228
  Transmission Date: 20080703
  Serious: Yes (Hospitalization)
  Sender: FDA-Public Use
  Company Number: BE-ABBOTT-07P-013-0428564-00

PATIENT
  Sex: Male
  Weight: 72.5 kg

DRUGS (7)
  1. HUMIRA [Suspect]
     Indication: CROHN'S DISEASE
     Dates: start: 20071107, end: 20071107
  2. HUMIRA [Suspect]
     Dosage: AT WEEK TWO
     Dates: start: 20071101, end: 20071101
  3. HUMIRA [Suspect]
     Route: 058
     Dates: start: 20071201
  4. METHYLPREDNISOLONE [Suspect]
     Indication: CROHN'S DISEASE
     Route: 048
     Dates: start: 20071025
  5. INFLIXIMAB [Suspect]
     Indication: DRUG USE FOR UNKNOWN INDICATION
  6. AZATHIOPRINE [Suspect]
     Indication: DRUG USE FOR UNKNOWN INDICATION
  7. METHYLPREDNISOLONE SODIUM SUCCINATE [Concomitant]
     Indication: CROHN'S DISEASE
     Dosage: DOSE DECREASE
     Dates: start: 20080102

REACTIONS (2)
  - ABSCESS [None]
  - SMALL INTESTINAL PERFORATION [None]
